FAERS Safety Report 5805382-1 (Version None)
Quarter: 2008Q3

REPORT INFORMATION
  Report Type: 
  Country: None (occurrence: None)
  Receive Date: 20080709
  Receipt Date: 20080709
  Transmission Date: 20090109
  Serious: No
  Sender: FDA-Public Use
  Company Number: None

PATIENT
  Age: 90 Year
  Sex: Male

DRUGS (1)
  1. KPHOS 500 MG, BEACH PRODUCTS [Suspect]
     Indication: URINE CALCIUM INCREASED
     Dosage: 500MG TID PO
     Route: 048
     Dates: start: 20080612, end: 20080702

REACTIONS (1)
  - GOUT [None]
